FAERS Safety Report 7492613-8 (Version None)
Quarter: 2011Q2

REPORT INFORMATION
  Report Type: 
  Country: None (occurrence: None)
  Receive Date: 20110519
  Receipt Date: 20110509
  Transmission Date: 20111010
  Serious: Yes (Other)
  Sender: FDA-Public Use
  Company Number: DE-UCBSA-031493

PATIENT
  Sex: Female

DRUGS (5)
  1. VIMPAT [Suspect]
     Indication: EPILEPSY
     Route: 048
     Dates: start: 20110310, end: 20110312
  2. VALPROAT [Concomitant]
     Indication: PARTIAL SEIZURES WITH SECONDARY GENERALISATION
     Route: 048
     Dates: start: 20050101
  3. VALPROAT [Concomitant]
     Indication: COMPLEX PARTIAL SEIZURES
     Route: 048
     Dates: start: 20050101
  4. LAMOTRIGINE [Concomitant]
     Indication: PARTIAL SEIZURES WITH SECONDARY GENERALISATION
     Route: 048
     Dates: start: 20050101
  5. LAMOTRIGINE [Concomitant]
     Indication: COMPLEX PARTIAL SEIZURES
     Route: 048
     Dates: start: 20050101

REACTIONS (1)
  - HALLUCINATION, VISUAL [None]
